FAERS Safety Report 8495840 (Version 4)
Quarter: 2012Q4

REPORT INFORMATION
  Report Type: 
  Country: JP (occurrence: JP)
  Receive Date: 20120405
  Receipt Date: 20120904
  Transmission Date: 20130627
  Serious: Yes (Hospitalization, Other)
  Sender: FDA-Public Use
  Company Number: JP-JNJFOC-20120315170

PATIENT
  Age: 8 None
  Sex: Female

DRUGS (4)
  1. DUROTEP MT [Suspect]
     Indication: PAIN
     Route: 062
     Dates: start: 201202
  2. DUROTEP MT [Suspect]
     Indication: PAIN
     Dosage: for once only
     Route: 062
  3. DUROTEP MT [Suspect]
     Indication: BACK PAIN
     Route: 062
     Dates: start: 201202
  4. DUROTEP MT [Suspect]
     Indication: BACK PAIN
     Dosage: for once only
     Route: 062

REACTIONS (7)
  - Accidental exposure to product [Unknown]
  - Breast cancer [Unknown]
  - Dysarthria [Unknown]
  - Cerebral infarction [Unknown]
  - Dizziness [Unknown]
  - Treatment noncompliance [Unknown]
  - Skin odour abnormal [Unknown]
